FAERS Safety Report 6647649-3 (Version None)
Quarter: 2010Q1

REPORT INFORMATION
  Report Type: 
  Country: None (occurrence: None)
  Receive Date: 20100323
  Receipt Date: 20100323
  Transmission Date: 20100710
  Serious: Yes (Other)
  Sender: FDA-Public Use
  Company Number: None

PATIENT
  Sex: Female
  Weight: 56.8 kg

DRUGS (2)
  1. METRONIDAZOLE [Suspect]
     Indication: BACTERIAL INFECTION
     Dosage: 500MG 3 X PER DAY 047
     Dates: start: 20100311, end: 20100313
  2. METRONIDAZOLE [Suspect]
     Indication: VAGINAL INFECTION
     Dosage: 500MG 3 X PER DAY 047
     Dates: start: 20100311, end: 20100313

REACTIONS (5)
  - DECREASED APPETITE [None]
  - DIZZINESS [None]
  - DYSGEUSIA [None]
  - HEART RATE INCREASED [None]
  - NAUSEA [None]
